FAERS Safety Report 7743921-4 (Version None)
Quarter: 2011Q3

REPORT INFORMATION
  Report Type: 
  Country: None (occurrence: None)
  Receive Date: 20110912
  Receipt Date: 20110830
  Transmission Date: 20111222
  Serious: Yes (Hospitalization)
  Sender: FDA-Public Use
  Company Number: US-GLAXOSMITHKLINE-B0706894A

PATIENT
  Sex: Female
  Weight: 88.2 kg

DRUGS (5)
  1. AVANDAMET [Suspect]
     Indication: DIABETES MELLITUS
     Route: 048
     Dates: end: 20050101
  2. MINOXIDIL [Concomitant]
     Dates: end: 20100901
  3. AVANDIA [Suspect]
     Indication: DIABETES MELLITUS
     Dosage: 4MG PER DAY
     Route: 048
     Dates: start: 20050101
  4. LIPITOR [Concomitant]
  5. AVAPRO [Concomitant]

REACTIONS (2)
  - CARDIOMYOPATHY [None]
  - CARDIOVASCULAR DISORDER [None]
